FAERS Safety Report 10527755 (Version 1)
Quarter: 2014Q4

REPORT INFORMATION
  Report Type: Spontaneous
  Country: PL (occurrence: None)
  Receive Date: 20141016
  Receipt Date: 20141016
  Transmission Date: 20150528
  Serious: Yes (Hospitalization, Other)
  Sender: FDA-Public Use
  Company Number: 2014-20468

PATIENT
  Age: 77 Year
  Sex: Female

DRUGS (1)
  1. EYLEA [Suspect]
     Active Substance: AFLIBERCEPT
     Indication: RETINAL DEGENERATION
     Route: 031
     Dates: start: 20141002, end: 20141002

REACTIONS (1)
  - Acute coronary syndrome [None]

NARRATIVE: CASE EVENT DATE: 20141004
